FAERS Safety Report 4394193-2 (Version None)
Quarter: 2004Q3

REPORT INFORMATION
  Report Type: 
  Country: None (occurrence: None)
  Receive Date: 20040706
  Receipt Date: 20040625
  Transmission Date: 20050211
  Serious: Yes (Other)
  Sender: FDA-Public Use
  Company Number: 2004-06-1790

PATIENT
  Age: 49 Year
  Sex: Female
  Weight: 90.7194 kg

DRUGS (2)
  1. VANCENASE [Suspect]
     Indication: NASAL POLYPS
     Dosage: 1-2 SPRAYS QD NASAL SPRA
     Route: 045
     Dates: start: 19980101
  2. VANCENASE [Suspect]
     Indication: RHINITIS ALLERGIC
     Dosage: 1-2 SPRAYS QD NASAL SPRA
     Route: 045
     Dates: start: 19980101

REACTIONS (3)
  - EPISTAXIS [None]
  - NASAL DRYNESS [None]
  - NASAL SEPTUM PERFORATION [None]
